FAERS Safety Report 6935171-6 (Version None)
Quarter: 2010Q3

REPORT INFORMATION
  Report Type: 
  Country: None (occurrence: None)
  Receive Date: 20100822
  Receipt Date: 20100816
  Transmission Date: 20110219
  Serious: Yes (Death)
  Sender: FDA-Public Use
  Company Number: PHHY2010NL53779

PATIENT
  Sex: Male

DRUGS (2)
  1. ZOMETA [Suspect]
     Dosage: 4 MG/ 5 ML
     Route: 042
  2. ZOMETA [Suspect]
     Dosage: UNK
     Dates: start: 20100802

REACTIONS (1)
  - PROSTATE CANCER [None]
